FAERS Safety Report 15598365 (Version 7)
Quarter: 2019Q1

REPORT INFORMATION
  Report Type: Report from Study
  Country: US (occurrence: US)
  Receive Date: 20181108
  Receipt Date: 20190204
  Transmission Date: 20190417
  Serious: Yes (Hospitalization)
  Sender: FDA-Public Use
  Company Number: US-ALLERGAN-1851680US

PATIENT
  Age: 58 Year
  Sex: Female
  Weight: 66.5 kg

DRUGS (7)
  1. TYLENOL [Concomitant]
     Active Substance: ACETAMINOPHEN
     Indication: ARTHRALGIA
     Dosage: 500 MG, TID
     Route: 048
     Dates: start: 20181030
  2. RAPASTINEL 450MG [Suspect]
     Active Substance: RAPASTINEL
     Indication: MAJOR DEPRESSION
     Dosage: 450 MG, Q WEEK
     Route: 042
     Dates: start: 20181106, end: 20181106
  3. RAPASTINEL 450MG [Suspect]
     Active Substance: RAPASTINEL
     Dosage: 450 MG, Q WEEK
     Route: 042
     Dates: start: 20170619, end: 20170619
  4. CITALOPRAM HYDROBROMIDE UNK [Suspect]
     Active Substance: CITALOPRAM HYDROBROMIDE
     Indication: MAJOR DEPRESSION
     Dosage: 40 MG, QD
     Route: 048
     Dates: start: 20170404
  5. NAPROXEN. [Concomitant]
     Active Substance: NAPROXEN
     Indication: OSTEOARTHRITIS
     Dosage: 500 MG, PRN
     Route: 048
     Dates: start: 20170404
  6. RAPASTINEL 450MG [Suspect]
     Active Substance: RAPASTINEL
     Dosage: 450 MG, Q WEEK
     Route: 042
     Dates: start: 20181022, end: 20181022
  7. HYDROCHLOROTHIAZIDE. [Concomitant]
     Active Substance: HYDROCHLOROTHIAZIDE
     Indication: HYPERTENSION
     Dosage: 25 MG, QD
     Route: 048
     Dates: start: 20160326

REACTIONS (2)
  - Arthritis bacterial [Recovered/Resolved with Sequelae]
  - Septic shock [Recovered/Resolved]

NARRATIVE: CASE EVENT DATE: 20181112
